FAERS Safety Report 10671708 (Version 2)
Quarter: 2015Q1

REPORT INFORMATION
  Report Type: Spontaneous
  Country: US (occurrence: US)
  Receive Date: 20141223
  Receipt Date: 20150128
  Transmission Date: 20150720
  Serious: No
  Sender: FDA-Public Use
  Company Number: US-BAYER-2014-188923

PATIENT
  Age: 18 Year
  Sex: Female

DRUGS (2)
  1. NATAZIA [Suspect]
     Active Substance: DIENOGEST\ESTRADIOL VALERATE
     Indication: CONTRACEPTION
     Dosage: UNK
     Route: 048
     Dates: start: 2014
  2. NATAZIA [Suspect]
     Active Substance: DIENOGEST\ESTRADIOL VALERATE
     Indication: MENORRHAGIA

REACTIONS (5)
  - Vaginal haemorrhage [None]
  - Abnormal withdrawal bleeding [Not Recovered/Not Resolved]
  - Feeling abnormal [None]
  - Abdominal distension [None]
  - Abdominal pain lower [None]

NARRATIVE: CASE EVENT DATE: 2014
